FAERS Safety Report 5663477-X (Version None)
Quarter: 2008Q1

REPORT INFORMATION
  Report Type: 
  Country: None (occurrence: None)
  Receive Date: 20080307
  Receipt Date: 20080225
  Transmission Date: 20080703
  Serious: Yes (Death)
  Sender: FDA-Public Use
  Company Number: US022806

PATIENT
  Sex: Male

DRUGS (6)
  1. PROVIGIL [Suspect]
     Dosage: 100 MG BID TRANSPLACENTAL
     Route: 064
     Dates: start: 20060101
  2. REBIF [Suspect]
     Dosage: 44 UG THREE TIMES PER WEEK TRANSPLACENTAL
     Route: 064
     Dates: start: 20060426, end: 20070526
  3. NEURONTIN [Suspect]
     Dosage: 600 MG TID TRANSPLACENTAL
     Route: 064
     Dates: start: 20060101
  4. DITROPAN [Suspect]
     Dosage: 5 MG QD TRANSPLACENTAL
     Route: 064
     Dates: start: 20060101
  5. CRESTOR [Suspect]
     Dosage: 10 MG QD TRANSPLACENTAL
     Route: 064
     Dates: start: 20060101
  6. GLUCOVANCE [Suspect]
     Dosage: 5 MG BID TRANSPLACENTAL
     Route: 064
     Dates: start: 20020101

REACTIONS (8)
  - CONGENITAL SCOLIOSIS [None]
  - CYANOSIS NEONATAL [None]
  - DRUG EXPOSURE DURING PREGNANCY [None]
  - FOETAL DISORDER [None]
  - FOETAL MOVEMENTS DECREASED [None]
  - MUSCULOSKELETAL DISORDER [None]
  - PREMATURE BABY [None]
  - TALIPES [None]
